FAERS Safety Report 8190220 (Version 2)
Quarter: 2013Q1

REPORT INFORMATION
  Report Type: Report from Study
  Country: DE (occurrence: DE)
  Receive Date: 20120829
  Receipt Date: 20130318
  Transmission Date: 20140127
  Serious: Yes (Hospitalization)
  Sender: FDA-Public Use
  Company Number: DE-ROCHE-1003701

PATIENT
  Age: 75 Year
  Sex: Female
  Weight: 70 kg

DRUGS (4)
  1. TOCILIZUMAB [Suspect]
     Indication: RHEUMATOID ARTHRITIS
     Route: 042
     Dates: start: 20091127, end: 20100224
  2. LEFLUNOMIDE [Suspect]
     Indication: RHEUMATOID ARTHRITIS
     Route: 048
     Dates: start: 20030101, end: 20100101
  3. L-THYROXIN [Concomitant]
     Indication: THYROIDECTOMY
     Route: 048
     Dates: start: 20020101
  4. BLOPRESS [Concomitant]
     Indication: HYPERTENSION
     Route: 065
     Dates: start: 20100301

REACTIONS (4)
  - Osteoarthritis [Recovered/Resolved with Sequelae]
  - Gamma-glutamyltransferase increased [Recovered/Resolved]
  - Post procedural infection [Unknown]
  - Alanine aminotransferase increased [Recovered/Resolved]
